FAERS Safety Report 24881876 (Version 2)
Quarter: 2025Q1

REPORT INFORMATION
  Report Type: Spontaneous
  Country: JP (occurrence: JP)
  Receive Date: 20250124
  Receipt Date: 20250206
  Transmission Date: 20250408
  Serious: Yes (Death)
  Sender: CHEPLAPHARM
  Company Number: JP-CHEPLA-2024016095

PATIENT
  Age: 88 Year
  Sex: Male

DRUGS (1)
  1. GANCICLOVIR [Suspect]
     Active Substance: GANCICLOVIR
     Indication: Product used for unknown indication
     Dosage: I.V.INFUSION/IV DRIP?DAILY DOSE: 1.25 MILLIGRAM/KG
     Route: 042
     Dates: start: 20241214, end: 20250103

REACTIONS (2)
  - Death [Fatal]
  - Off label use [Recovered/Resolved]

NARRATIVE: CASE EVENT DATE: 20241214
